FAERS Safety Report 5257925-7 (Version None)
Quarter: 2007Q1

REPORT INFORMATION
  Report Type: 
  Country: None (occurrence: None)
  Receive Date: 20070307
  Receipt Date: 20061024
  Transmission Date: 20070707
  Serious: No
  Sender: FDA-Public Use
  Company Number: US-GLAXOSMITHKLINE-A0624734A

PATIENT
  Age: 39 Year
  Sex: Female

DRUGS (6)
  1. REQUIP [Suspect]
     Indication: RESTLESS LEGS SYNDROME
     Dosage: .5MG AT NIGHT
     Route: 048
     Dates: start: 20060801
  2. CELEXA [Concomitant]
  3. CLONAZEPAM [Concomitant]
  4. UNISOM [Concomitant]
  5. SOMINEX [Concomitant]
  6. NATURES CURE [Concomitant]

REACTIONS (2)
  - ABNORMAL DREAMS [None]
  - POOR QUALITY SLEEP [None]
